FAERS Safety Report 20220195 (Version 1)
Quarter: 2021Q4

REPORT INFORMATION
  Report Type: Other
  Country: SE (occurrence: SE)
  Receive Date: 20211223
  Receipt Date: 20211223
  Transmission Date: 20220304
  Serious: Yes (Hospitalization)
  Sender: FDA-Public Use
  Company Number: None

PATIENT
  Age: 79 Year
  Sex: Female

DRUGS (24)
  1. PAROXETINE [Suspect]
     Active Substance: PAROXETINE
     Indication: Product used for unknown indication
     Dosage: 2 DOSAGE FORM
     Route: 065
  2. LYRICA [Suspect]
     Active Substance: PREGABALIN
     Indication: Product used for unknown indication
     Dosage: 75 MILLIGRAM, QD
     Route: 048
  3. POTASSIUM CHLORIDE [Concomitant]
     Active Substance: POTASSIUM CHLORIDE
     Indication: Product used for unknown indication
     Dosage: UNK, 2X2
     Route: 048
     Dates: start: 20210812
  4. EXTRANEAL [Concomitant]
     Active Substance: CALCIUM CHLORIDE\ICODEXTRIN\MAGNESIUM CHLORIDE\SODIUM CHLORIDE\SODIUM LACTATE
     Indication: Product used for unknown indication
     Dosage: UNK, IN DIALYSIS
     Route: 065
     Dates: start: 20210909
  5. LORATADINE [Concomitant]
     Active Substance: LORATADINE
     Indication: Product used for unknown indication
     Dosage: 1 MG, QD (AS NECESSARY)
     Route: 048
     Dates: start: 20210902
  6. BRICANYL [Concomitant]
     Active Substance: TERBUTALINE SULFATE
     Indication: Product used for unknown indication
     Dosage: 1 UNK, QD (AS NECESSARY) 1-2 VB, 1-4 TIMES / DAY
     Route: 055
     Dates: start: 20210902
  7. FOLIC ACID [Concomitant]
     Active Substance: FOLIC ACID
     Indication: Product used for unknown indication
     Dosage: UNK, 1X1
     Route: 048
     Dates: start: 20210909
  8. ZOPICLONE [Concomitant]
     Active Substance: ZOPICLONE
     Indication: Product used for unknown indication
     Dosage: UNK, 0.5 X 1
     Route: 065
     Dates: start: 20211012
  9. WARFARIN SODIUM [Concomitant]
     Active Substance: WARFARIN SODIUM
     Indication: Product used for unknown indication
     Dosage: UNK
     Route: 048
     Dates: start: 2021
  10. ORUDIS [Concomitant]
     Active Substance: KETOPROFEN
     Indication: Product used for unknown indication
     Dosage: 1 UNK, QD (AS NECESSARY)
     Route: 065
     Dates: start: 20210805
  11. GLYCOSAMINOGLYCANS [Concomitant]
     Active Substance: GLYCOSAMINOGLYCANS
     Indication: Product used for unknown indication
     Dosage: 3 UNK, QD
     Route: 065
     Dates: start: 20210708
  12. RENVELA [Concomitant]
     Active Substance: SEVELAMER CARBONATE
     Indication: Product used for unknown indication
     Dosage: UNK, 2 X 3
     Route: 048
     Dates: start: 20210909
  13. UREA [Concomitant]
     Active Substance: UREA
     Indication: Product used for unknown indication
     Dosage: 1 UNK, QD, (AS NECESSARY)
     Route: 065
     Dates: start: 20210902
  14. LERCANIDIPINE HYDROCHLORIDE [Concomitant]
     Active Substance: LERCANIDIPINE HYDROCHLORIDE
     Indication: Product used for unknown indication
     Dosage: UNK, 1 X 1
     Route: 048
     Dates: start: 20211110
  15. CEFUROXIME [Concomitant]
     Active Substance: CEFUROXIME
     Indication: Product used for unknown indication
     Dosage: UNK, 1 X 2
     Route: 048
     Dates: start: 20210812
  16. ACETAMINOPHEN [Concomitant]
     Active Substance: ACETAMINOPHEN
     Indication: Product used for unknown indication
     Dosage: 1 UNK, QD (AS NECESSARY)
     Route: 048
     Dates: start: 20210805
  17. ERYTHROPOIETIN [Concomitant]
     Active Substance: ERYTHROPOIETIN
     Indication: Product used for unknown indication
     Dosage: 2 DOSAGE FORM, Q.WK.
     Route: 058
     Dates: start: 20210917
  18. CALCIUM CARBONATE [Concomitant]
     Active Substance: CALCIUM CARBONATE
     Indication: Product used for unknown indication
     Dosage: UNK, 1X3
     Route: 048
     Dates: start: 20210930
  19. IRON ISOMALTOSIDE 1000 [Concomitant]
     Active Substance: IRON ISOMALTOSIDE 1000
     Indication: Product used for unknown indication
     Dosage: UNK
     Route: 065
     Dates: start: 20211027
  20. ALFACALCIDOL [Concomitant]
     Active Substance: ALFACALCIDOL
     Indication: Product used for unknown indication
     Dosage: UNK, 1X1
     Route: 048
     Dates: start: 20210909
  21. SYMBICORT [Concomitant]
     Active Substance: BUDESONIDE\FORMOTEROL FUMARATE DIHYDRATE
     Indication: Product used for unknown indication
     Dosage: UNK, 1X2
     Route: 055
     Dates: start: 20211112
  22. CYANOCOBALAMIN [Concomitant]
     Active Substance: CYANOCOBALAMIN
     Indication: Product used for unknown indication
     Dosage: UNK, 1X1
     Route: 048
     Dates: start: 20210902
  23. GLUCOSE;POTASSIUM CHLORIDE;SODIUM CHLORIDE;SODIUM LACTATE [Concomitant]
     Indication: Product used for unknown indication
     Dosage: UNK
     Route: 065
     Dates: start: 20210909
  24. SODIUM PICOSULFATE [Concomitant]
     Active Substance: SODIUM PICOSULFATE
     Indication: Product used for unknown indication
     Dosage: 1 UNK, QD, AS NECESSARY
     Route: 048
     Dates: start: 20210902

REACTIONS (2)
  - Muscle twitching [Recovered/Resolved]
  - Confusional state [Recovering/Resolving]

NARRATIVE: CASE EVENT DATE: 20211112
